FAERS Safety Report 11846447 (Version 1)
Quarter: 2015Q4

REPORT INFORMATION
  Report Type: Spontaneous
  Country: FR (occurrence: FR)
  Receive Date: 20151217
  Receipt Date: 20151217
  Transmission Date: 20160305
  Serious: Yes (Hospitalization)
  Sender: FDA-Public Use
  Company Number: FR-ASTRAZENECA-2015SF26111

PATIENT
  Age: 24533 Day
  Sex: Female

DRUGS (11)
  1. BISOPROLOL HEMIFUMARATE [Concomitant]
     Active Substance: BISOPROLOL FUMARATE
  2. PANTOPRAZOLE [Suspect]
     Active Substance: PANTOPRAZOLE SODIUM
     Route: 048
     Dates: start: 20150201
  3. SALBUTAMOL [Concomitant]
     Active Substance: ALBUTEROL
  4. KARDEGIC [Concomitant]
     Active Substance: ASPIRIN LYSINE
  5. ARANESP [Concomitant]
     Active Substance: DARBEPOETIN ALFA
  6. RENAGEL [Concomitant]
     Active Substance: SEVELAMER HYDROCHLORIDE
  7. INEXIUM [Suspect]
     Active Substance: ESOMEPRAZOLE
     Route: 048
  8. TAHOR [Concomitant]
     Active Substance: ATORVASTATIN CALCIUM
  9. SMECTA [Concomitant]
     Active Substance: MONTMORILLONITE
  10. LEVOTHYROX [Concomitant]
     Active Substance: LEVOTHYROXINE
  11. TIORFAN [Concomitant]
     Active Substance: RACECADOTRIL

REACTIONS (6)
  - Cognitive disorder [Not Recovered/Not Resolved]
  - Hypocalcaemia [Not Recovered/Not Resolved]
  - Dehydration [Unknown]
  - Hypomagnesaemia [Not Recovered/Not Resolved]
  - Blood phosphorus increased [Not Recovered/Not Resolved]
  - Myoclonus [Not Recovered/Not Resolved]

NARRATIVE: CASE EVENT DATE: 20150315
